FAERS Safety Report 5634954-2 (Version None)
Quarter: 2008Q1

REPORT INFORMATION
  Report Type: 
  Country: None (occurrence: None)
  Receive Date: 20080221
  Receipt Date: 20080221
  Transmission Date: 20080703
  Serious: Yes (Hospitalization)
  Sender: FDA-Public Use
  Company Number: None

PATIENT
  Age: 53 Year
  Sex: Male
  Weight: 86 kg

DRUGS (1)
  1. LAMOTRIGINE [Suspect]
     Dosage: 125MG HS PO
     Route: 048
     Dates: start: 20070912, end: 20071226

REACTIONS (3)
  - PRURITUS [None]
  - RASH [None]
  - URTICARIA [None]
